FAERS Safety Report 21378123 (Version 3)
Quarter: 2022Q4

REPORT INFORMATION
  Report Type: Spontaneous
  Country: JP (occurrence: JP)
  Receive Date: 20220926
  Receipt Date: 20221019
  Transmission Date: 20230113
  Serious: Yes (Hospitalization)
  Sender: FDA-Public Use
  Company Number: JP-SAKK-01287328

PATIENT
  Age: 57 Year
  Sex: Female

DRUGS (4)
  1. LANTUS SOLOSTAR [Suspect]
     Active Substance: INSULIN GLARGINE
     Indication: Blood glucose abnormal
     Dosage: 3 (UNIT, UNSPECIFIED) OF BASAL INSULIN ON THE DAYS OF DIALYSIS
     Route: 058
     Dates: end: 202209
  2. LANTUS SOLOSTAR [Suspect]
     Active Substance: INSULIN GLARGINE
     Dosage: 6 (UNIT, UNSPECIFIED) OF BASAL INSULIN ON THE DAYS WITHOUT DIALYSIS
     Route: 058
     Dates: end: 202209
  3. INSULIN ASPART [Suspect]
     Active Substance: INSULIN ASPART
     Indication: Product used for unknown indication
     Dosage: DAILY DOSE: 12 (UNIT, UNSPECIFIED), TID (0, 4, 8 [UNIT, UNSPECIFIED] OF BOLUS INSULIN ON THE DAYS OF
     Route: 065
  4. INSULIN ASPART [Suspect]
     Active Substance: INSULIN ASPART
     Dosage: DAILY DOSE: 14 (UNIT, UNSPECIFIED), TID (4, 4, 6 [UNIT, UNSPECIFIED] OF BOLUS INSULIN ON THE DAYS WI
     Route: 065

REACTIONS (3)
  - Fall [Unknown]
  - Hypoglycaemia [Recovered/Resolved]
  - Wrong product administered [Recovered/Resolved]

NARRATIVE: CASE EVENT DATE: 20220911
